FAERS Safety Report 5669764-3 (Version None)
Quarter: 2008Q1

REPORT INFORMATION
  Report Type: 
  Country: None (occurrence: None)
  Receive Date: 20080313
  Receipt Date: 20080313
  Transmission Date: 20080703
  Serious: Yes (Life-Threatening, Hospitalization)
  Sender: FDA-Public Use
  Company Number: None

PATIENT
  Age: 51 Year
  Sex: Male
  Weight: 111 kg

DRUGS (18)
  1. BACTRIM DS [Suspect]
     Indication: CELLULITIS
     Dosage: 2 TABLETS TWICE DAILY ORAL
     Route: 048
     Dates: start: 20071018, end: 20071024
  2. LISINOPRIL [Suspect]
     Indication: HYPERTENSION
     Dosage: 10 MG DAILY ORAL
     Route: 048
     Dates: start: 20000706, end: 20071103
  3. ACCU-CHEK COMFORT CV (GLUCOSE) TEST STRIP [Concomitant]
  4. ALBUTEROL [Concomitant]
  5. DIPHENHYDRAMINE HCL [Concomitant]
  6. DOCUSATE NA [Concomitant]
  7. GEMFIBROZIL [Concomitant]
  8. HYDROCHLOROTHIAZIDE [Concomitant]
  9. INSULIN HUMA NPH [Concomitant]
  10. INSULIN REG HUMAN 100 UNITS/ML NOVOLIN R [Concomitant]
  11. LISINOPRIL [Concomitant]
  12. MIRTAZAPINE [Concomitant]
  13. NIFEDIPINE [Concomitant]
  14. SENNOSIDES [Concomitant]
  15. SIMVASTATIN [Concomitant]
  16. SODIUM CHLORIDE INJ [Concomitant]
  17. SULFA 800MG-TRIMETHOPRIM [Concomitant]
  18. TRAZODONE HCL [Concomitant]

REACTIONS (4)
  - ASTHENIA [None]
  - HYPERKALAEMIA [None]
  - MUSCLE SPASMS [None]
  - RENAL FAILURE ACUTE [None]
